FAERS Safety Report 26000618 (Version 1)
Quarter: 2025Q4

REPORT INFORMATION
  Report Type: Spontaneous
  Country: US (occurrence: US)
  Receive Date: 20251105
  Receipt Date: 20251105
  Transmission Date: 20260117
  Serious: Yes (Other)
  Sender: AMGEN
  Company Number: US-AMGEN-USASP2025215612

PATIENT
  Age: 29 Year
  Sex: Male

DRUGS (3)
  1. RITUXIMAB [Suspect]
     Active Substance: RITUXIMAB
     Indication: Arteritis
     Dosage: UNK, INFUSION
     Route: 065
  2. PREDNISONE [Suspect]
     Active Substance: PREDNISONE
     Indication: Arteritis
     Dosage: 1 MILLIGRAM/KILOGRAM, QD
     Route: 065
  3. PREDNISONE [Suspect]
     Active Substance: PREDNISONE
     Dosage: UNK, FOLLOWED BY A SLOW TAPER ON A WEEKLY BASIS
     Route: 065

REACTIONS (3)
  - Ischaemic cardiomyopathy [Unknown]
  - Aneurysm [Unknown]
  - Off label use [Unknown]
